FAERS Safety Report 6369922-9 (Version None)
Quarter: 2009Q3

REPORT INFORMATION
  Report Type: 
  Country: None (occurrence: None)
  Receive Date: 20090923
  Receipt Date: 20070823
  Transmission Date: 20100115
  Serious: Yes (Other)
  Sender: FDA-Public Use
  Company Number: US-ASTRAZENECA-2006UW11321

PATIENT
  Age: 14813 Day
  Sex: Female
  Weight: 137 kg

DRUGS (41)
  1. SEROQUEL [Suspect]
     Indication: DEPRESSION
     Dosage: 25MG, 100MG
     Route: 048
     Dates: start: 20011026, end: 20060101
  2. SEROQUEL [Suspect]
     Indication: ANXIETY
     Dosage: 25MG, 100MG
     Route: 048
     Dates: start: 20011026, end: 20060101
  3. SEROQUEL [Suspect]
     Dosage: DOSE - 100 TO 400 MG DAILY, STRENGTH -25 TO 100 MG
     Route: 048
  4. SEROQUEL [Suspect]
     Dosage: DOSE - 100 TO 400 MG DAILY, STRENGTH -25 TO 100 MG
     Route: 048
  5. HALDOL [Concomitant]
     Route: 065
     Dates: start: 19890101, end: 19990101
  6. NAVANE (THIOTHIXINE) [Concomitant]
     Route: 065
     Dates: start: 19890101
  7. ZOLOFT [Concomitant]
     Dosage: 100 - 150 MG DAILY
  8. XANAX [Concomitant]
  9. ATENOLOL [Concomitant]
  10. AMBIEN [Concomitant]
  11. GLUCOPHAGE [Concomitant]
  12. IBUPROFEN [Concomitant]
     Dosage: 600 - 800 MG DAILY
  13. VICODIN [Concomitant]
  14. ULTRAM [Concomitant]
  15. NYSTATIN [Concomitant]
     Dosage: STRENGTH 100000 UNIT/ML
  16. DITROPAN [Concomitant]
  17. ZOCOR [Concomitant]
  18. LORTAB [Concomitant]
  19. NORTRIPTYLINE HCL [Concomitant]
  20. AVANDIA [Concomitant]
  21. CELEBREX [Concomitant]
  22. AMERGE [Concomitant]
  23. DIAZEPAM [Concomitant]
  24. LUNESTA [Concomitant]
  25. LYRICA [Concomitant]
  26. REQUIP [Concomitant]
  27. GLIPIZIDE [Concomitant]
  28. DIOVAN [Concomitant]
  29. HYDROCHLOROTHIAZIDE [Concomitant]
  30. KETOROLAC TROMETHAMINE [Concomitant]
  31. ORPHENADRINE CITRATE [Concomitant]
  32. TRAMADOL HCL [Concomitant]
  33. CYCLOBENZAPRINE [Concomitant]
  34. PROMETHAZINE [Concomitant]
  35. DEPAKOTE [Concomitant]
  36. PENICILLIN VK [Concomitant]
  37. LIPITOR [Concomitant]
     Dosage: 10 - 20 MG
  38. DEXAMETHASONE [Concomitant]
  39. SKELAXIN [Concomitant]
  40. DIPHENHYDRAMINE HCL [Concomitant]
  41. PERPHENAZINE [Concomitant]

REACTIONS (25)
  - ABDOMINAL PAIN UPPER [None]
  - ARTHRALGIA [None]
  - BACK PAIN [None]
  - BRONCHITIS [None]
  - CALCULUS URETHRAL [None]
  - CELLULITIS [None]
  - CHEST PAIN [None]
  - CONVULSION [None]
  - COUGH [None]
  - DIABETES MELLITUS [None]
  - FLANK PAIN [None]
  - HAEMATURIA [None]
  - HYPERGLYCAEMIA [None]
  - HYPERTENSION [None]
  - NECK PAIN [None]
  - NEPHROLITHIASIS [None]
  - ORAL CANDIDIASIS [None]
  - POST PROCEDURAL INFECTION [None]
  - PRESBYOPIA [None]
  - PYREXIA [None]
  - RENAL COLIC [None]
  - SINUSITIS [None]
  - URINARY TRACT INFECTION [None]
  - VISUAL ACUITY REDUCED [None]
  - VULVOVAGINAL CANDIDIASIS [None]
